FAERS Safety Report 6844058-9 (Version None)
Quarter: 2010Q3

REPORT INFORMATION
  Report Type: 
  Country: None (occurrence: None)
  Receive Date: 20100714
  Receipt Date: 20100714
  Transmission Date: 20110219
  Serious: Yes (Hospitalization)
  Sender: FDA-Public Use
  Company Number: None

PATIENT
  Age: 38 Year
  Sex: Female
  Weight: 53.5244 kg

DRUGS (2)
  1. MIRTAZAPINE [Suspect]
     Indication: INSOMNIA
     Dosage: 1 PILL 1X PER DAY PO
     Route: 048
     Dates: start: 20090915, end: 20100630
  2. MIRTAZAPINE [Suspect]
     Indication: NAUSEA
     Dosage: 1 PILL 1X PER DAY PO
     Route: 048
     Dates: start: 20090915, end: 20100630

REACTIONS (9)
  - AGITATION [None]
  - ANXIETY [None]
  - DIZZINESS [None]
  - FATIGUE [None]
  - INSOMNIA [None]
  - NAUSEA [None]
  - TREMOR [None]
  - VISION BLURRED [None]
  - VOMITING [None]
